FAERS Safety Report 14297188 (Version 2)
Quarter: 2017Q4

REPORT INFORMATION
  Report Type: Spontaneous
  Country: JP (occurrence: JP)
  Receive Date: 20171218
  Receipt Date: 20171227
  Transmission Date: 20180321
  Serious: Yes (Death, Other)
  Sender: FDA-Public Use
  Company Number: JP-PFIZER INC-2017538113

PATIENT
  Age: 47 Year
  Sex: Male

DRUGS (2)
  1. CAMPTO [Suspect]
     Active Substance: IRINOTECAN
     Indication: PANCREATIC CARCINOMA
     Dosage: UNK, 1X/DAY (TOTAL OF 8 CYCLES)
     Route: 041
     Dates: start: 20140226, end: 20140806
  2. ELPLAT [Suspect]
     Active Substance: OXALIPLATIN
     Indication: PANCREATIC CARCINOMA
     Dosage: UNK, 1X/DAY (TOTAL OF 8 CYCLES)
     Route: 041
     Dates: start: 20140226, end: 20140806

REACTIONS (2)
  - Dyskinesia [Not Recovered/Not Resolved]
  - Abnormal behaviour [Not Recovered/Not Resolved]

NARRATIVE: CASE EVENT DATE: 20140829
